FAERS Safety Report 9733122 (Version 1)
Quarter: 2013Q4

REPORT INFORMATION
  Report Type: Spontaneous
  Country: DE (occurrence: DE)
  Receive Date: 20131205
  Receipt Date: 20131205
  Transmission Date: 20140711
  Serious: Yes (Hospitalization)
  Sender: FDA-Public Use
  Company Number: GXKR2013DE003692

PATIENT
  Sex: 0

DRUGS (15)
  1. MIRTAZAPINE [Suspect]
     Dosage: 45 MG, UNK
     Route: 048
     Dates: start: 201301
  2. ALLOPURINOL [Suspect]
     Dosage: 150 MG, UNK
     Route: 048
     Dates: start: 20130312, end: 20130319
  3. DULOXETINE [Suspect]
     Dosage: 60 MG, UNK
     Route: 048
     Dates: start: 201101, end: 20130308
  4. DULOXETINE [Suspect]
     Dosage: 90 MG, UNK
     Route: 048
     Dates: start: 20130309, end: 20130314
  5. DULOXETINE [Suspect]
     Dosage: 120 MG, UNK
     Route: 048
     Dates: start: 20130315, end: 20130317
  6. DULOXETINE [Suspect]
     Dosage: 90 MG, UNK
     Route: 048
     Dates: start: 20130318, end: 20130318
  7. PANTOPRAZOL [Concomitant]
     Dosage: 40 MG, UNK
     Route: 048
     Dates: start: 201001, end: 20130320
  8. DOMPERIDONE [Concomitant]
     Dosage: 30 MG, UNK
     Route: 048
     Dates: start: 20130321
  9. L-THYROXINE//LEVOTHYROXINE [Concomitant]
     Dosage: 25 UG, UNK
     Route: 048
     Dates: start: 201001
  10. ASS [Concomitant]
     Dosage: 100 MG, UNK
     Route: 048
  11. TORASEMID [Concomitant]
     Dosage: 7.5 MG, UNK
     Route: 048
     Dates: start: 20130309, end: 20130319
  12. TORASEMID [Concomitant]
     Dosage: 7.5 MG, UNK
     Route: 048
     Dates: start: 20130321
  13. RAMIPRIL [Concomitant]
     Dosage: 10 MG, UNK
     Route: 048
     Dates: end: 20130311
  14. RAMIPRIL [Concomitant]
     Dosage: 7.5 MG, UNK
     Route: 048
     Dates: start: 20130312
  15. SIMVASTATIN [Concomitant]
     Dosage: 20 MG, UNK
     Route: 048
     Dates: start: 201301

REACTIONS (1)
  - Renal impairment [Recovered/Resolved]
